FAERS Safety Report 20099188 (Version 3)
Quarter: 2021Q4

REPORT INFORMATION
  Report Type: Spontaneous
  Country: US (occurrence: None)
  Receive Date: 20211122
  Receipt Date: 20211221
  Transmission Date: 20220303
  Serious: No
  Sender: FDA-Public Use
  Company Number: 2021A811491

PATIENT
  Sex: Male
  Weight: 114.3 kg

DRUGS (1)
  1. BUDESONIDE\FORMOTEROL\GLYCOPYRRONIUM [Suspect]
     Active Substance: BUDESONIDE\FORMOTEROL\GLYCOPYRRONIUM
     Indication: Chronic obstructive pulmonary disease
     Dosage: 160/7.2/5.0 UG, ONE PUFF TWICE A DAY (ONE PUFF IN THE MORNING ONE PUFF AT NIGHT)
     Route: 055

REACTIONS (4)
  - Dyspnoea [Unknown]
  - Device use issue [Unknown]
  - Device delivery system issue [Unknown]
  - Product prescribing error [Unknown]
